FAERS Safety Report 26155759 (Version 1)
Quarter: 2025Q4

REPORT INFORMATION
  Report Type: Spontaneous
  Country: US (occurrence: US)
  Receive Date: 20251215
  Receipt Date: 20251215
  Transmission Date: 20260117
  Serious: Yes (Other)
  Sender: ALKEM
  Company Number: None

PATIENT
  Age: 72 Year
  Sex: Male

DRUGS (3)
  1. TACROLIMUS [Suspect]
     Active Substance: TACROLIMUS
     Indication: Immunosuppressant drug therapy
     Dosage: 4 MILLIGRAM, QD
     Route: 065
     Dates: start: 2002
  2. ITRACONAZOLE [Suspect]
     Active Substance: ITRACONAZOLE
     Indication: Scedosporium infection
     Dosage: 200 MILLIGRAM, QD
     Route: 065
  3. PREDNISONE [Suspect]
     Active Substance: PREDNISONE
     Indication: Immunosuppressant drug therapy
     Dosage: 20 MILLIGRAM, QD
     Route: 065
     Dates: start: 2002

REACTIONS (3)
  - Phaeohyphomycosis [Recovering/Resolving]
  - Scedosporium infection [Recovered/Resolved]
  - Treatment failure [Unknown]

NARRATIVE: CASE EVENT DATE: 20181201
